FAERS Safety Report 6976909-1 (Version None)
Quarter: 2010Q3

REPORT INFORMATION
  Report Type: 
  Country: None (occurrence: None)
  Receive Date: 20100910
  Receipt Date: 20090428
  Transmission Date: 20110219
  Serious: No
  Sender: FDA-Public Use
  Company Number: US-WYE-H09144809

PATIENT
  Sex: Male

DRUGS (3)
  1. PRISTIQ [Suspect]
     Indication: DEPRESSION
     Route: 048
     Dates: start: 20090423
  2. XANAX [Concomitant]
  3. AMBIEN [Concomitant]

REACTIONS (3)
  - APHASIA [None]
  - FATIGUE [None]
  - THINKING ABNORMAL [None]
